FAERS Safety Report 4578984-0 (Version None)
Quarter: 2005Q1

REPORT INFORMATION
  Report Type: 
  Country: None (occurrence: None)
  Receive Date: 20050118
  Receipt Date: 20040305
  Transmission Date: 20050727
  Serious: Yes (Life-Threatening, Hospitalization)
  Sender: FDA-Public Use
  Company Number: 361091

PATIENT
  Age: 72 Year
  Sex: Female

DRUGS (1)
  1. ROCEPHIN [Suspect]
     Indication: PNEUMONIA
     Dosage: 1 GRAM   1 PER DOSE   INTRAVENOUS
     Route: 042
     Dates: start: 20040130, end: 20040130

REACTIONS (4)
  - ANAPHYLACTIC REACTION [None]
  - DYSPNOEA [None]
  - RESPIRATORY ARREST [None]
  - THROAT TIGHTNESS [None]
